FAERS Safety Report 21245692 (Version 1)
Quarter: 2022Q3

REPORT INFORMATION
  Report Type: Spontaneous
  Country: US (occurrence: None)
  Receive Date: 20220824
  Receipt Date: 20220824
  Transmission Date: 20221027
  Serious: Yes (Hospitalization, Other)
  Sender: FDA-Public Use
  Company Number: US-ARIS GLOBAL-EMM202206-000111

PATIENT
  Age: 11 Year
  Sex: Female

DRUGS (1)
  1. ENDARI [Suspect]
     Active Substance: GLUTAMINE
     Indication: Haemoglobin C disease
     Dosage: 10 G
     Dates: start: 20220525

REACTIONS (2)
  - Sickle cell anaemia with crisis [Recovering/Resolving]
  - Acute chest syndrome [Recovering/Resolving]

NARRATIVE: CASE EVENT DATE: 20220531
